FAERS Safety Report 13573200 (Version 3)
Quarter: 2017Q4

REPORT INFORMATION
  Report Type: Spontaneous
  Country: ES (occurrence: ES)
  Receive Date: 20170523
  Receipt Date: 20171025
  Transmission Date: 20180320
  Serious: Yes (Death, Other)
  Sender: FDA-Public Use
  Company Number: ES-JNJFOC-20170516633

PATIENT
  Age: 77 Year
  Sex: Male
  Weight: 115 kg

DRUGS (5)
  1. SINTROM [Concomitant]
     Active Substance: ACENOCOUMAROL
     Route: 065
  2. ZYTIGA [Suspect]
     Active Substance: ABIRATERONE ACETATE
     Indication: PROSTATE CANCER METASTATIC
     Dosage: EVERY 24 HRS
     Route: 048
     Dates: start: 20160715, end: 20170329
  3. COPALIA [Concomitant]
     Active Substance: AMLODIPINE BESYLATE\VALSARTAN
     Route: 065
  4. PRAVASTATIN. [Concomitant]
     Active Substance: PRAVASTATIN
     Route: 065
  5. ELIGARD [Concomitant]
     Active Substance: LEUPROLIDE ACETATE
     Route: 065

REACTIONS (4)
  - Syncope [Unknown]
  - Fall [Fatal]
  - Craniocerebral injury [Fatal]
  - Sleep attacks [Unknown]

NARRATIVE: CASE EVENT DATE: 201702
